FAERS Safety Report 8447261-X (Version None)
Quarter: 2012Q2

REPORT INFORMATION
  Report Type: 
  Country: None (occurrence: None)
  Receive Date: 20120619
  Receipt Date: 20120606
  Transmission Date: 20120825
  Serious: Yes (Other)
  Sender: FDA-Public Use
  Company Number: FR-COVIDIEN/TYCO HEALTHCARE/MALLINCKRODT-T201202578

PATIENT
  Age: 51 Year
  Sex: Female

DRUGS (1)
  1. OPTIJECT [Suspect]
     Dosage: UNK
     Route: 065
     Dates: start: 20120601, end: 20120601

REACTIONS (1)
  - TYPE III IMMUNE COMPLEX MEDIATED REACTION [None]
